FAERS Safety Report 13183060 (Version 1)
Quarter: 2017Q1

REPORT INFORMATION
  Report Type: Spontaneous
  Country: US (occurrence: US)
  Receive Date: 20170202
  Receipt Date: 20170202
  Transmission Date: 20170428
  Serious: No
  Sender: FDA-Public Use
  Company Number: None

PATIENT
  Age: 64 Year
  Sex: Female

DRUGS (3)
  1. ENBREL [Suspect]
     Active Substance: ETANERCEPT
     Indication: RHEUMATOID ARTHRITIS
  2. ENBREL [Suspect]
     Active Substance: ETANERCEPT
     Indication: IRON DEFICIENCY ANAEMIA
  3. ENBREL [Suspect]
     Active Substance: ETANERCEPT
     Indication: HYPOTENSION

REACTIONS (2)
  - Chest pain [None]
  - Dizziness [None]

NARRATIVE: CASE EVENT DATE: 20170202
